FAERS Safety Report 6590465-1 (Version None)
Quarter: 2010Q1

REPORT INFORMATION
  Report Type: 
  Country: None (occurrence: None)
  Receive Date: 20100219
  Receipt Date: 20100211
  Transmission Date: 20100710
  Serious: Yes (Hospitalization)
  Sender: FDA-Public Use
  Company Number: AU-ROCHE-684966

PATIENT
  Sex: Female
  Weight: 50 kg

DRUGS (7)
  1. TAMIFLU [Suspect]
     Indication: DRUG USE FOR UNKNOWN INDICATION
     Route: 048
     Dates: start: 20090820, end: 20090824
  2. CELLCEPT [Concomitant]
  3. COVERSYL [Concomitant]
  4. EPREX [Concomitant]
  5. LIPITOR [Concomitant]
     Dates: end: 20090824
  6. MAREVAN [Concomitant]
     Indication: ATRIAL FIBRILLATION
  7. NEORAL [Concomitant]

REACTIONS (2)
  - INTERNATIONAL NORMALISED RATIO INCREASED [None]
  - LIVER FUNCTION TEST ABNORMAL [None]
